FAERS Safety Report 9830754 (Version 2)
Quarter: 2014Q1

REPORT INFORMATION
  Report Type: Spontaneous
  Country: US (occurrence: US)
  Receive Date: 20140120
  Receipt Date: 20140328
  Transmission Date: 20141002
  Serious: No
  Sender: FDA-Public Use
  Company Number: US-SA-2014SA007243

PATIENT
  Age: 51 Year
  Sex: Male
  Weight: 95.25 kg

DRUGS (8)
  1. LANTUS SOLOSTAR [Suspect]
     Indication: TYPE 2 DIABETES MELLITUS
     Dosage: DOSE:2 UNIT(S)
     Route: 051
     Dates: end: 20140117
  2. LANTUS SOLOSTAR [Suspect]
     Indication: TYPE 2 DIABETES MELLITUS
     Dosage: DOSE:20 UNIT(S)
     Route: 051
     Dates: start: 20140119
  3. SOLOSTAR [Concomitant]
  4. ALBUTEROL [Concomitant]
     Indication: ASTHMA
     Route: 055
  5. ALPRAZOLAM [Concomitant]
     Indication: ANXIETY
  6. FEXOFENADINE [Concomitant]
     Dosage: FREQUENCY: QHS
  7. ADVAIR [Concomitant]
     Dosage: DOSE:1 PUFF(S)
     Route: 055
  8. POTASSIUM GLUCONATE [Concomitant]

REACTIONS (1)
  - Incorrect dose administered [Unknown]
